FAERS Safety Report 16771747 (Version 1)
Quarter: 2019Q3

REPORT INFORMATION
  Report Type: Spontaneous
  Country: CA (occurrence: CA)
  Receive Date: 20190904
  Receipt Date: 20190904
  Transmission Date: 20191005
  Serious: Yes (Other)
  Sender: FDA-Public Use
  Company Number: CA-PFIZER INC-2019376170

PATIENT
  Age: 14 Year
  Sex: Female
  Weight: 35 kg

DRUGS (1)
  1. ZOLEDRONIC ACID [Suspect]
     Active Substance: ZOLEDRONIC ACID
     Indication: OSTEOGENESIS IMPERFECTA
     Dosage: 22 MG, 6 EVERY 1 MONTH
     Route: 042

REACTIONS (5)
  - Product use in unapproved indication [Unknown]
  - Osteonecrosis of jaw [Recovering/Resolving]
  - Fistula [Recovering/Resolving]
  - Product use issue [Unknown]
  - Off label use [Unknown]
